FAERS Safety Report 8613300-6 (Version None)
Quarter: 2012Q3

REPORT INFORMATION
  Report Type: 
  Country: None (occurrence: None)
  Receive Date: 20120822
  Receipt Date: 20120507
  Transmission Date: 20120928
  Serious: Yes (Hospitalization, Other)
  Sender: FDA-Public Use
  Company Number: JP-009507513-1208JPN007229

PATIENT

DRUGS (15)
  1. PEG-INTRON [Suspect]
     Indication: HEPATITIS C
     Dosage: 80MCG/WEEK
     Route: 058
     Dates: start: 20120409
  2. REBETOL [Suspect]
     Dosage: 400 MG, ONCE
     Route: 048
     Dates: start: 20120514, end: 20120520
  3. SELBEX [Concomitant]
     Indication: PROPHYLAXIS
     Dosage: 150 MG, ONCE
     Route: 048
     Dates: start: 20120409
  4. REBETOL [Suspect]
     Indication: HEPATITIS C
     Dosage: 600 MG, ONCE
     Route: 048
     Dates: start: 20120409, end: 20120513
  5. LOXONIN [Concomitant]
     Dosage: 60MG/DAY, AS NEEDED.
     Route: 048
  6. TELAVIC [Suspect]
     Route: 048
     Dates: start: 20120604
  7. ZOLPIDEM [Concomitant]
     Indication: INSOMNIA
     Dosage: 1TAB/DAY, AS NEEDED.
     Route: 048
     Dates: start: 20120420, end: 20120501
  8. ALENDRONATE SODIUM [Concomitant]
     Indication: PROPHYLAXIS
     Dosage: 35MG/WEEK
     Route: 048
     Dates: start: 20120424
  9. VOLTAREN [Concomitant]
     Indication: PROPHYLAXIS
     Dosage: 25 MG, ONCE
     Route: 054
     Dates: start: 20120409, end: 20120409
  10. TELAVIC [Suspect]
     Indication: HEPATITIS C
     Dosage: 2250 MG, ONCE
     Route: 048
     Dates: start: 20120409, end: 20120527
  11. TELAVIC [Suspect]
     Route: 048
     Dates: start: 20120528, end: 20120603
  12. LOXONIN [Concomitant]
     Indication: PROPHYLAXIS
     Dosage: 90 MG, ONCE
     Route: 048
     Dates: start: 20120409
  13. RABEPRAZOLE SODIUM [Concomitant]
     Indication: PROPHYLAXIS
     Dosage: 1 DF, ONCE
     Route: 048
     Dates: start: 20120418
  14. REBETOL [Suspect]
     Route: 048
     Dates: start: 20120521
  15. URSO 250 [Concomitant]
     Indication: HEPATITIS C
     Dosage: 600 MG, ONCE
     Route: 048

REACTIONS (2)
  - DRUG ERUPTION [None]
  - HAEMOGLOBIN DECREASED [None]
